FAERS Safety Report 4288624-6 (Version None)
Quarter: 2004Q1

REPORT INFORMATION
  Report Type: 
  Country: None (occurrence: None)
  Receive Date: 20040209
  Receipt Date: 20031229
  Transmission Date: 20041129
  Serious: Yes (Death, Hospitalization)
  Sender: FDA-Public Use
  Company Number: DE-GLAXOSMITHKLINE-D0042782A

PATIENT
  Age: 44 Year
  Sex: Male
  Weight: 75 kg

DRUGS (3)
  1. QUILONUM RETARD [Suspect]
     Dosage: 45000TAB PER DAY
     Route: 048
  2. TRIMIPRAMINE [Suspect]
     Dosage: 5000MG PER DAY
     Route: 048
  3. ZYPREXA [Suspect]
     Dosage: 56TAB PER DAY
     Route: 048

REACTIONS (10)
  - ANURIA [None]
  - ASPIRATION [None]
  - BLOOD CREATINE PHOSPHOKINASE INCREASED [None]
  - BOWEL SOUNDS ABNORMAL [None]
  - COMA [None]
  - COMPLETED SUICIDE [None]
  - DEATH [None]
  - PYREXIA [None]
  - SHOCK [None]
  - VOMITING [None]
